FAERS Safety Report 24284173 (Version 1)
Quarter: 2024Q3

REPORT INFORMATION
  Report Type: Spontaneous
  Country: CN (occurrence: CN)
  Receive Date: 20240905
  Receipt Date: 20240905
  Transmission Date: 20241016
  Serious: Yes (Hospitalization)
  Sender: ROCHE
  Company Number: CN-ROCHE-10000072159

PATIENT
  Age: 61 Year
  Sex: Female
  Weight: 53.5 kg

DRUGS (3)
  1. BEVACIZUMAB [Suspect]
     Active Substance: BEVACIZUMAB
     Indication: Cervix carcinoma
     Dosage: SIXTH CHEMOTHERAPY
     Route: 042
     Dates: start: 20240823, end: 20240823
  2. CARBOPLATIN [Suspect]
     Active Substance: CARBOPLATIN
     Indication: Cervix carcinoma
     Dosage: SIXTH CHEMOTHERAPY
     Route: 042
     Dates: start: 20240823, end: 20240823
  3. PACLITAXEL [Suspect]
     Active Substance: PACLITAXEL
     Indication: Cervix carcinoma
     Dosage: SIXTH CHEMOTHERAPY
     Route: 042
     Dates: start: 20240823, end: 20240823

REACTIONS (1)
  - Myelosuppression [Recovering/Resolving]

NARRATIVE: CASE EVENT DATE: 20240825
